FAERS Safety Report 4575956-7 (Version None)
Quarter: 2005Q1

REPORT INFORMATION
  Report Type: 
  Country: None (occurrence: None)
  Receive Date: 20050209
  Receipt Date: 20050126
  Transmission Date: 20050727
  Serious: Yes (Hospitalization)
  Sender: FDA-Public Use
  Company Number: DE-AMGEN-UK109937

PATIENT
  Age: 80 Year
  Sex: Female

DRUGS (1)
  1. ARANESP [Suspect]
     Indication: RENAL FAILURE CHRONIC
     Route: 065

REACTIONS (6)
  - CEREBROVASCULAR ACCIDENT [None]
  - DEHYDRATION [None]
  - FACIAL PARESIS [None]
  - HAEMOGLOBIN INCREASED [None]
  - PULMONARY OEDEMA [None]
  - TRANSIENT ISCHAEMIC ATTACK [None]
